FAERS Safety Report 7227235-7 (Version None)
Quarter: 2011Q1

REPORT INFORMATION
  Report Type: 
  Country: None (occurrence: None)
  Receive Date: 20110114
  Receipt Date: 20110107
  Transmission Date: 20110831
  Serious: Yes (Hospitalization)
  Sender: FDA-Public Use
  Company Number: A0890903A

PATIENT
  Age: 86 Year
  Sex: Female

DRUGS (14)
  1. SIMVASTATIN [Concomitant]
  2. SYNTHROID [Concomitant]
  3. AMBIEN [Concomitant]
  4. ALPRAZOLAM [Concomitant]
  5. CARTIA XT [Concomitant]
  6. PLAVIX [Concomitant]
  7. PROVENTIL [Concomitant]
  8. LASIX [Concomitant]
  9. DUONEB [Concomitant]
  10. ANTIVERT [Concomitant]
  11. ADVAIR [Suspect]
     Indication: PULMONARY OEDEMA
     Route: 055
  12. CALCIUM [Concomitant]
  13. VICODIN [Concomitant]
  14. LISINOPRIL [Concomitant]

REACTIONS (1)
  - CEREBROVASCULAR ACCIDENT [None]
